FAERS Safety Report 4345331-9 (Version None)
Quarter: 2004Q2

REPORT INFORMATION
  Report Type: 
  Country: None (occurrence: None)
  Receive Date: 20040420
  Receipt Date: 20040412
  Transmission Date: 20050107
  Serious: Yes (Other)
  Sender: FDA-Public Use
  Company Number: 205780

PATIENT
  Age: 24 Year
  Sex: Female
  Weight: 104.3 kg

DRUGS (7)
  1. XOLAIR [Suspect]
     Indication: ASTHMA
     Dosage: 300 MG, Q4W, SUBCUTANEOUS
     Route: 058
     Dates: start: 20031209, end: 20040407
  2. SINGULAIR [Concomitant]
  3. ADVAIR (FLUTICASONE PROPINATE, SALMETEROL XINAFOATE) [Concomitant]
  4. COMBIVENT (IPRATROPIUM BROMIDE, ALBUTEROL SULFATE, ALBUTEROL) [Concomitant]
  5. TEGRETOL [Concomitant]
  6. PLAQUENIL [Concomitant]
  7. UNISOM [Concomitant]

REACTIONS (3)
  - COUGH [None]
  - FORCED EXPIRATORY VOLUME DECREASED [None]
  - WHEEZING [None]
